FAERS Safety Report 23097187 (Version 1)
Quarter: 2023Q4

REPORT INFORMATION
  Report Type: Spontaneous
  Country: DE (occurrence: DE)
  Receive Date: 20231023
  Receipt Date: 20231023
  Transmission Date: 20240110
  Serious: Yes (Hospitalization, Other)
  Sender: FDA-Public Use
  Company Number: DE-BRISTOL-MYERS SQUIBB COMPANY-2023-113200

PATIENT
  Sex: Female

DRUGS (2)
  1. METHOTREXATE [Suspect]
     Active Substance: METHOTREXATE
     Indication: Product used for unknown indication
     Route: 065
  2. ORENCIA [Concomitant]
     Active Substance: ABATACEPT
     Indication: Rheumatic disorder
     Dosage: DOSE : UNAVAILABLE;     FREQ : ONCE A WEEK. ROA: INJECTION
     Route: 065

REACTIONS (2)
  - Infected skin ulcer [Unknown]
  - Wound [Unknown]

NARRATIVE: CASE EVENT DATE: 20221101
